FAERS Safety Report 8823252 (Version 13)
Quarter: 2013Q4

REPORT INFORMATION
  Report Type: Spontaneous
  Country: US (occurrence: US)
  Receive Date: 20121003
  Receipt Date: 20131021
  Transmission Date: 20140711
  Serious: Yes (Hospitalization)
  Sender: FDA-Public Use
  Company Number: US-GLAXOSMITHKLINE-A0995990A

PATIENT
  Age: 16 Year
  Sex: Male

DRUGS (6)
  1. FLOLAN [Suspect]
     Indication: COR PULMONALE CHRONIC
     Dosage: 50NGKM CONTINUOUS
     Route: 042
     Dates: start: 20010524
  2. TRACLEER [Concomitant]
  3. LETAIRIS [Concomitant]
  4. REVATIO [Concomitant]
  5. GLEEVEC [Concomitant]
  6. LASIX [Concomitant]

REACTIONS (7)
  - Hospitalisation [Recovered/Resolved]
  - Surgery [Recovered/Resolved]
  - Infection [Recovered/Resolved]
  - Influenza [Recovered/Resolved]
  - Pyrexia [Recovered/Resolved]
  - Medical device complication [Unknown]
  - Device infusion issue [Unknown]
